FAERS Safety Report 15170900 (Version 5)
Quarter: 2018Q3

REPORT INFORMATION
  Report Type: Spontaneous
  Country: JP (occurrence: JP)
  Receive Date: 20180720
  Receipt Date: 20180910
  Transmission Date: 20181010
  Serious: Yes (Death, Hospitalization, Other)
  Sender: FDA-Public Use
  Company Number: JP-JNJFOC-20180700771

PATIENT
  Age: 68 Year
  Sex: Male
  Weight: 65.4 kg

DRUGS (14)
  1. OLMETEC [Concomitant]
     Active Substance: OLMESARTAN MEDOXOMIL
     Route: 048
  2. SLOW?K [Concomitant]
     Active Substance: POTASSIUM CHLORIDE
     Route: 048
  3. BAYASPIRIN [Concomitant]
     Active Substance: ASPIRIN
     Route: 048
  4. ORTEXER [Concomitant]
     Route: 061
  5. REVLIMID [Suspect]
     Active Substance: LENALIDOMIDE
     Indication: PLASMA CELL MYELOMA
     Route: 048
     Dates: start: 20180613, end: 20180625
  6. HYDROCHLOROTHIAZIDE. [Concomitant]
     Active Substance: HYDROCHLOROTHIAZIDE
     Route: 048
  7. DARZALEX [Suspect]
     Active Substance: DARATUMUMAB
     Indication: PLASMA CELL MYELOMA
     Route: 042
     Dates: start: 20180621, end: 20180727
  8. DECADRON [Concomitant]
     Active Substance: DEXAMETHASONE
     Indication: PLASMA CELL MYELOMA
     Route: 041
     Dates: start: 20180621
  9. SINGULAIR [Concomitant]
     Active Substance: MONTELUKAST SODIUM
     Route: 048
  10. SODIUM RABEPRAZOLE [Concomitant]
     Active Substance: RABEPRAZOLE SODIUM
     Route: 048
  11. AZUNOL [Concomitant]
     Active Substance: SODIUM GUALENATE
  12. BROTIZOLAM [Concomitant]
     Active Substance: BROTIZOLAM
     Route: 048
  13. DIFLUCAN [Concomitant]
     Active Substance: FLUCONAZOLE
  14. BARACLUDE [Concomitant]
     Active Substance: ENTECAVIR
     Route: 048

REACTIONS (9)
  - Cerebral infarction [Fatal]
  - Pyrexia [Recovered/Resolved]
  - Febrile neutropenia [Unknown]
  - Haemoglobin decreased [Unknown]
  - Platelet count decreased [Recovered/Resolved]
  - Diarrhoea [Unknown]
  - Neutropenic colitis [Recovered/Resolved]
  - Sepsis [Recovered/Resolved]
  - Abdominal pain [Unknown]

NARRATIVE: CASE EVENT DATE: 20180624
